FAERS Safety Report 7000645-9 (Version None)
Quarter: 2010Q3

REPORT INFORMATION
  Report Type: 
  Country: None (occurrence: None)
  Receive Date: 20100920
  Receipt Date: 20100913
  Transmission Date: 20110219
  Serious: Yes (Other)
  Sender: FDA-Public Use
  Company Number: US-PERRIGO-10US012994

PATIENT
  Sex: Female

DRUGS (1)
  1. ACETAMINOPHEN-ASPIRIN-CAFFEINE 374 [Suspect]
     Indication: HEADACHE
     Dosage: 1 TABLET, SINGLE
     Route: 048
     Dates: start: 20100913, end: 20100913

REACTIONS (4)
  - HYPERSENSITIVITY [None]
  - HYPOAESTHESIA ORAL [None]
  - LIP SWELLING [None]
  - RASH [None]
